FAERS Safety Report 9207526 (Version 1)
Quarter: 2013Q2

REPORT INFORMATION
  Report Type: Report from Study
  Country: US (occurrence: US)
  Receive Date: 20130403
  Receipt Date: 20130403
  Transmission Date: 20140414
  Serious: Yes (Hospitalization, Other)
  Sender: FDA-Public Use
  Company Number: US-ABBOTT-13P-163-1068996-00

PATIENT
  Sex: Female
  Weight: 57.66 kg

DRUGS (7)
  1. HUMIRA [Suspect]
     Indication: RHEUMATOID ARTHRITIS
     Dates: start: 2007, end: 201202
  2. UNKNOWN CHEMOTHERAPY [Suspect]
     Indication: BREAST CANCER
     Dates: start: 201206, end: 201209
  3. METHOTREXATE [Concomitant]
     Indication: RHEUMATOID ARTHRITIS
  4. FOLIC ACID [Concomitant]
     Indication: VITAMIN SUPPLEMENTATION
  5. PREDNISONE [Concomitant]
     Indication: RHEUMATOID ARTHRITIS
  6. OVER THE COUNTER VITAMINS [Concomitant]
     Indication: VITAMIN SUPPLEMENTATION
  7. LOVASTATIN [Concomitant]
     Indication: BLOOD CHOLESTEROL INCREASED

REACTIONS (7)
  - Mammogram abnormal [Recovered/Resolved]
  - Breast cancer [Recovered/Resolved]
  - Alopecia [Recovered/Resolved]
  - Clostridium difficile infection [Recovered/Resolved]
  - Gastrointestinal disorder [Recovered/Resolved]
  - Laboratory test abnormal [Unknown]
  - Procedural complication [Recovered/Resolved]
